FAERS Safety Report 8934705 (Version 1)
Quarter: 2012Q4

REPORT INFORMATION
  Report Type: 
  Country: US (occurrence: US)
  Receive Date: 20121129
  Receipt Date: 20121129
  Transmission Date: 20130627
  Serious: Yes (Other)
  Sender: FDA-Public Use
  Company Number: CHPA2012US023886

PATIENT
  Age: 58 Year
  Sex: Female

DRUGS (1)
  1. HABITROL [Suspect]
     Indication: SMOKING CESSATION THERAPY
     Dosage: 1 patch every 24 hours
     Route: 062
     Dates: start: 2009, end: 2009

REACTIONS (4)
  - Chronic obstructive pulmonary disease [Unknown]
  - Hypertension [Unknown]
  - Weight increased [Unknown]
  - Nightmare [Unknown]
